FAERS Safety Report 17458270 (Version 1)
Quarter: 2020Q1

REPORT INFORMATION
  Report Type: Spontaneous
  Country: PL (occurrence: PL)
  Receive Date: 20200225
  Receipt Date: 20200225
  Transmission Date: 20200409
  Serious: Yes (Other)
  Sender: FDA-Public Use
  Company Number: PL-MYLANLABS-2020M1019848

PATIENT
  Age: 50 Year
  Sex: Male

DRUGS (2)
  1. IMATINIB. [Suspect]
     Active Substance: IMATINIB MESYLATE
     Indication: CHRONIC MYELOID LEUKAEMIA
     Dosage: 400 MG, QD
     Route: 065
  2. HYDROXYCARBAMIDE [Suspect]
     Active Substance: HYDROXYUREA
     Indication: LEUKOCYTOSIS
     Dosage: 3 MG, QD
     Route: 065

REACTIONS (3)
  - Hepatotoxicity [Recovering/Resolving]
  - Malignant neoplasm progression [Unknown]
  - Chronic myeloid leukaemia [Unknown]
